FAERS Safety Report 5575337-3 (Version None)
Quarter: 2007Q4

REPORT INFORMATION
  Report Type: 
  Country: None (occurrence: None)
  Receive Date: 20071227
  Receipt Date: 20071217
  Transmission Date: 20080405
  Serious: Yes (Hospitalization)
  Sender: FDA-Public Use
  Company Number: US-ABBOTT-07P-163-0430803-00

PATIENT
  Sex: Female

DRUGS (3)
  1. TRICOR [Suspect]
     Indication: BLOOD TRIGLYCERIDES INCREASED
     Route: 048
     Dates: start: 20050101, end: 20071217
  2. SOLIFENACIN [Concomitant]
     Indication: URINARY INCONTINENCE
     Dates: end: 20071217
  3. LOTREL [Concomitant]
     Indication: HYPERTENSION
     Dates: end: 20071217

REACTIONS (1)
  - HIP FRACTURE [None]
